FAERS Safety Report 24888547 (Version 2)
Quarter: 2025Q4

REPORT INFORMATION
  Report Type: Spontaneous
  Country: US (occurrence: US)
  Receive Date: 20250127
  Receipt Date: 20251119
  Transmission Date: 20260117
  Serious: Yes (Other)
  Sender: COOPERSURGICAL
  Company Number: US-COOPERSURGICAL, INC.-2025CPS000384

PATIENT
  Age: 22 Year
  Sex: Female
  Weight: 81.633 kg

DRUGS (1)
  1. PARAGARD T 380A [Suspect]
     Active Substance: COPPER
     Indication: Contraception
     Dosage: UNK
     Route: 015
     Dates: start: 20160112, end: 20180126

REACTIONS (16)
  - Salpingectomy [Recovered/Resolved]
  - Laparoscopy [Recovered/Resolved]
  - Ectopic pregnancy with contraceptive device [Recovered/Resolved]
  - Ruptured ectopic pregnancy [Recovered/Resolved]
  - Drug ineffective [Unknown]
  - Complication associated with device [Recovered/Resolved]
  - Anxiety [Unknown]
  - Urinary tract infection [Unknown]
  - Emotional distress [Unknown]
  - Abdominal pain lower [Unknown]
  - Intermenstrual bleeding [Unknown]
  - Abnormal uterine bleeding [Unknown]
  - Menstruation irregular [Unknown]
  - Pain [Unknown]
  - Pelvic pain [Unknown]
  - Muscle spasms [Recovered/Resolved]

NARRATIVE: CASE EVENT DATE: 20160112
